FAERS Safety Report 6907036-7 (Version None)
Quarter: 2010Q3

REPORT INFORMATION
  Report Type: 
  Country: None (occurrence: None)
  Receive Date: 20100804
  Receipt Date: 20081111
  Transmission Date: 20110219
  Serious: Yes (Hospitalization)
  Sender: FDA-Public Use
  Company Number: US-PFIZER INC-2008095779

PATIENT

DRUGS (3)
  1. SELZENTRY [Suspect]
     Indication: HIV INFECTION
  2. SAQUINAVIR [Suspect]
     Indication: HIV INFECTION
  3. RITONAVIR [Suspect]
     Indication: HIV INFECTION

REACTIONS (2)
  - HEPATIC FAILURE [None]
  - RENAL FAILURE [None]
